FAERS Safety Report 7595893-3 (Version None)
Quarter: 2011Q3

REPORT INFORMATION
  Report Type: 
  Country: None (occurrence: None)
  Receive Date: 20110707
  Receipt Date: 20110630
  Transmission Date: 20111222
  Serious: Yes (Death, Other)
  Sender: FDA-Public Use
  Company Number: PHHO2011BR11290

PATIENT
  Sex: Female
  Weight: 62.5 kg

DRUGS (2)
  1. ENOXAPARIN [Suspect]
     Indication: COAGULOPATHY
     Dosage: 40 MG / SC
     Dates: start: 20110325, end: 20110404
  2. DAPTOMYCIN [Suspect]
     Dosage: 500 MG, QD
     Dates: start: 20110319, end: 20110404

REACTIONS (4)
  - CONCOMITANT DISEASE PROGRESSION [None]
  - ENDOCARDITIS BACTERIAL [None]
  - EMBOLISM [None]
  - SHOCK HAEMORRHAGIC [None]
